FAERS Safety Report 21438088 (Version 2)
Quarter: 2022Q4

REPORT INFORMATION
  Report Type: Report from Study
  Country: US (occurrence: US)
  Receive Date: 20221011
  Receipt Date: 20221229
  Transmission Date: 20230113
  Serious: No
  Sender: FDA-Public Use
  Company Number: US-ABBVIE-4138566

PATIENT
  Sex: Male

DRUGS (1)
  1. SKYRIZI [Suspect]
     Active Substance: RISANKIZUMAB-RZAA
     Indication: Psoriatic arthropathy
     Route: 058

REACTIONS (4)
  - Skin exfoliation [Unknown]
  - Therapeutic product effect decreased [Unknown]
  - Psoriatic arthropathy [Recovering/Resolving]
  - Hypoaesthesia [Unknown]
